FAERS Safety Report 10645691 (Version 1)
Quarter: 2014Q4

REPORT INFORMATION
  Report Type: Spontaneous
  Country: FR (occurrence: FR)
  Receive Date: 20141211
  Receipt Date: 20141211
  Transmission Date: 20150529
  Serious: Yes (Death, Other)
  Sender: FDA-Public Use
  Company Number: FR-ASTRAZENECA-2014SE93217

PATIENT
  Age: 27198 Day
  Sex: Male

DRUGS (4)
  1. FLUVASTATINE BASE [Suspect]
     Active Substance: FLUVASTATIN SODIUM
     Route: 048
  2. INEXIUM [Suspect]
     Active Substance: ESOMEPRAZOLE
     Route: 048
  3. RULID [Suspect]
     Active Substance: ROXITHROMYCIN
     Indication: TONSILLITIS
     Route: 048
     Dates: start: 20141120, end: 20141122
  4. COAPROVEL [Suspect]
     Active Substance: HYDROCHLOROTHIAZIDE\IRBESARTAN
     Route: 048

REACTIONS (4)
  - Tonsillitis [Unknown]
  - Coronary artery stenosis [Unknown]
  - Road traffic accident [Unknown]
  - Malaise [Fatal]

NARRATIVE: CASE EVENT DATE: 20141122
